FAERS Safety Report 8082808-7 (Version None)
Quarter: 2012Q1

REPORT INFORMATION
  Report Type: 
  Country: None (occurrence: None)
  Receive Date: 20120127
  Receipt Date: 20110211
  Transmission Date: 20120608
  Serious: No
  Sender: FDA-Public Use
  Company Number: US-ABBOTT-11P-163-0705050-00

PATIENT
  Age: 56 Year
  Sex: Female

DRUGS (7)
  1. PREDNISONE TAB [Concomitant]
     Indication: PRODUCT USED FOR UNKNOWN INDICATION
     Dosage: 5MG DAILY
  2. TRAZODONE HCL [Concomitant]
     Indication: PRODUCT USED FOR UNKNOWN INDICATION
     Dosage: 300MG AT NIGH
  3. ULTRAM [Concomitant]
     Indication: PAIN
     Dosage: PRN
  4. NAPROXEN (ALEVE) [Concomitant]
     Indication: PAIN
  5. CITALOPRAM [Concomitant]
     Indication: PRODUCT USED FOR UNKNOWN INDICATION
     Dosage: 40MG - AT NIGHT
  6. HUMIRA [Suspect]
     Indication: RHEUMATOID ARTHRITIS
  7. METHOTREXATE [Concomitant]
     Indication: PRODUCT USED FOR UNKNOWN INDICATION
     Dosage: 2.5MG- 4 PILLS EVERY WEEK

REACTIONS (4)
  - PYREXIA [None]
  - SINUS DISORDER [None]
  - PAIN [None]
  - CHILLS [None]
